FAERS Safety Report 9423361 (Version 2)
Quarter: 2014Q1

REPORT INFORMATION
  Report Type: Report from Study
  Country: GB (occurrence: GB)
  Receive Date: 20130726
  Receipt Date: 20140131
  Transmission Date: 20141002
  Serious: Yes (Other)
  Sender: FDA-Public Use
  Company Number: GB-JNJFOC-20130712657

PATIENT
  Age: 67 Year
  Sex: Female
  Weight: 98 kg

DRUGS (11)
  1. STELARA [Suspect]
     Indication: PSORIASIS
     Route: 058
     Dates: start: 20110914
  2. STELARA [Suspect]
     Indication: PSORIASIS
     Route: 058
     Dates: start: 20110330
  3. ATORVASTATIN [Concomitant]
     Indication: PRODUCT USED FOR UNKNOWN INDICATION
  4. BISOPROLOL [Concomitant]
     Indication: PRODUCT USED FOR UNKNOWN INDICATION
  5. CLOPIDOGREL [Concomitant]
  6. LEVOTHYROXINE SODIUM [Concomitant]
  7. PARACETAMOL [Concomitant]
     Indication: PRODUCT USED FOR UNKNOWN INDICATION
  8. TELMISARTAN [Concomitant]
  9. CLOBETASOL PROPIONATE CREAM [Concomitant]
  10. CLARELUX [Concomitant]
  11. GLYCERYL TRINITRATE SPRAY [Concomitant]

REACTIONS (3)
  - Bowen^s disease [Recovered/Resolved]
  - Squamous cell carcinoma [Unknown]
  - Type 2 diabetes mellitus [Unknown]
